FAERS Safety Report 14791016 (Version 3)
Quarter: 2019Q1

REPORT INFORMATION
  Report Type: Spontaneous
  Country: US (occurrence: US)
  Receive Date: 20180423
  Receipt Date: 20190117
  Transmission Date: 20190417
  Serious: Yes (Other)
  Sender: FDA-Public Use
  Company Number: US-JNJFOC-20180418938

PATIENT
  Sex: Female
  Weight: 68.04 kg

DRUGS (1)
  1. FENTANYL. [Suspect]
     Active Substance: FENTANYL
     Indication: BACK PAIN
     Route: 062

REACTIONS (6)
  - Wrong technique in product usage process [Unknown]
  - Product adhesion issue [Unknown]
  - Parkinson^s disease [Unknown]
  - Breakthrough pain [Unknown]
  - Dysphagia [Unknown]
  - Product complaint [Unknown]

NARRATIVE: CASE EVENT DATE: 2016
